FAERS Safety Report 20249074 (Version 2)
Quarter: 2021Q4

REPORT INFORMATION
  Report Type: Report from Study
  Country: CA (occurrence: CA)
  Receive Date: 20211229
  Receipt Date: 20211230
  Transmission Date: 20220304
  Serious: Yes (Death, Hospitalization, Other)
  Sender: FDA-Public Use
  Company Number: CA-GILEAD-2021-0559718

PATIENT
  Age: 40 Year
  Sex: Female

DRUGS (6)
  1. SACITUZUMAB GOVITECAN [Suspect]
     Active Substance: SACITUZUMAB GOVITECAN
     Indication: Triple negative breast cancer
     Dosage: 671 MG
     Route: 042
     Dates: start: 20211201
  2. ENCORAFENIB [Concomitant]
     Active Substance: ENCORAFENIB
  3. AC [ACECLOFENAC] [Concomitant]
  4. BENADRYL [Concomitant]
     Active Substance: DIPHENHYDRAMINE HYDROCHLORIDE
     Dosage: 25 MG
  5. TYLENOL [Concomitant]
     Active Substance: ACETAMINOPHEN
     Dosage: 650 MG
  6. DEXAMETHASONE [Concomitant]
     Active Substance: DEXAMETHASONE
     Dosage: 8 MG

REACTIONS (3)
  - Death [Fatal]
  - Oxygen saturation decreased [Unknown]
  - Platelet count decreased [Unknown]

NARRATIVE: CASE EVENT DATE: 20211201
